FAERS Safety Report 4426897-7 (Version None)
Quarter: 2004Q3

REPORT INFORMATION
  Report Type: 
  Country: None (occurrence: None)
  Receive Date: 20040811
  Receipt Date: 20040726
  Transmission Date: 20050211
  Serious: Yes (Hospitalization, Other)
  Sender: FDA-Public Use
  Company Number: 2004-UK-00716UK

PATIENT
  Age: 34 Year
  Sex: Female

DRUGS (4)
  1. NEVIRAPINE (EU/1/97/055/001) (NEVIRAPINE) [Suspect]
     Indication: HIV INFECTION
     Dosage: 200 MG TWICE DAILY , PO
     Route: 048
     Dates: start: 19990201
  2. AZT [Suspect]
     Indication: HIV INFECTION
     Dosage: 250 MG  PO
     Route: 048
     Dates: start: 20010801
  3. ABACAVIR [Concomitant]
  4. FOLIC ACID [Concomitant]

REACTIONS (6)
  - ANAEMIA [None]
  - HAEMATEMESIS [None]
  - HEPATIC FIBROSIS [None]
  - PORTAL HYPERTENSION [None]
  - PORTAL VEIN THROMBOSIS [None]
  - VARICES OESOPHAGEAL [None]
